FAERS Safety Report 7558531-1 (Version None)
Quarter: 2011Q2

REPORT INFORMATION
  Report Type: 
  Country: None (occurrence: None)
  Receive Date: 20110620
  Receipt Date: 20110609
  Transmission Date: 20111010
  Serious: Yes (Other)
  Sender: FDA-Public Use
  Company Number: JP-BRISTOL-MYERS SQUIBB COMPANY-15451479

PATIENT
  Age: 81 Year
  Sex: Male
  Weight: 71 kg

DRUGS (11)
  1. SHAKUYAKU-KANZO-TO [Concomitant]
     Dosage: GRANULE
  2. KARY UNI [Concomitant]
     Dosage: EYE DROPS
     Dates: start: 19981203
  3. OLMESARTAN MEDOXOMIL [Concomitant]
     Dosage: TABS
     Dates: start: 20081113
  4. SERMION [Concomitant]
     Dosage: TABS
     Dates: start: 20010912
  5. GLUFAST [Concomitant]
     Dosage: TABLET
     Dates: start: 20050526
  6. OMEPRAZOLE [Concomitant]
     Dosage: TABS
  7. ATELEC [Concomitant]
     Dosage: TABS
     Dates: start: 20090204
  8. PAROTIN [Concomitant]
     Dosage: TABS
  9. MENTAX [Concomitant]
     Dosage: SOLUTION FORM
     Dates: start: 20080903
  10. SAXAGLIPTIN [Suspect]
     Indication: TYPE 2 DIABETES MELLITUS
     Dosage: RECEIVED FOR 8WKS; TABS
     Route: 048
     Dates: start: 20101007, end: 20101221
  11. EPADEL [Concomitant]

REACTIONS (1)
  - HEPATIC NEOPLASM MALIGNANT [None]
